FAERS Safety Report 8849603 (Version 1)
Quarter: 2012Q4

REPORT INFORMATION
  Report Type: Spontaneous
  Country: US (occurrence: None)
  Receive Date: 20121018
  Receipt Date: 20121018
  Transmission Date: 20130627
  Serious: Yes (Other)
  Sender: FDA-Public Use
  Company Number: None

PATIENT
  Age: 60 Year
  Sex: Female
  Weight: 104.33 kg

DRUGS (1)
  1. ATORVASTATIN CALCIUM [Suspect]
     Indication: CHOLESTEROL HIGH

REACTIONS (4)
  - Gait disturbance [None]
  - Pain [None]
  - Gait disturbance [None]
  - Spinal column stenosis [None]
